FAERS Safety Report 7422061 (Version 3)
Quarter: 2014Q3

REPORT INFORMATION
  Report Type: Spontaneous
  Country: US (occurrence: US)
  Receive Date: 20100616
  Receipt Date: 20140715
  Transmission Date: 20150326
  Serious: No
  Sender: FDA-Public Use
  Company Number: US-ASTRAZENECA-2009UW17392

PATIENT
  Age: 87 Year
  Sex: Female
  Weight: 39.9 kg

DRUGS (17)
  1. PULMICORT FLEXHALER [Suspect]
     Active Substance: BUDESONIDE
     Indication: BRONCHIAL DISORDER
     Dosage: GENERIC
     Route: 055
     Dates: start: 2000
  2. WARFARIN [Suspect]
     Active Substance: WARFARIN
     Indication: ATRIAL FIBRILLATION
     Route: 048
     Dates: start: 2010
  3. PROVENTIL [Concomitant]
     Active Substance: ALBUTEROL
     Indication: DYSPNOEA
     Dates: start: 2010
  4. CALCIUM [Concomitant]
     Active Substance: CALCIUM
     Dosage: 1200 MG
  5. PULMICORT FLEXHALER [Suspect]
     Active Substance: BUDESONIDE
     Indication: CHRONIC OBSTRUCTIVE PULMONARY DISEASE
     Dosage: GENERIC
     Route: 055
     Dates: start: 2000
  6. WARFARIN [Suspect]
     Active Substance: WARFARIN
     Indication: ATRIAL FIBRILLATION
     Dosage: GENERIC
     Route: 048
     Dates: start: 2010
  7. VANTERIL [Concomitant]
     Indication: DYSPNOEA
     Dates: start: 1999
  8. PULMICORT FLEXHALER [Suspect]
     Active Substance: BUDESONIDE
     Indication: CHRONIC OBSTRUCTIVE PULMONARY DISEASE
     Route: 055
     Dates: start: 2000
  9. PULMICORT FLEXHALER [Suspect]
     Active Substance: BUDESONIDE
     Indication: CHRONIC OBSTRUCTIVE PULMONARY DISEASE
     Route: 055
     Dates: start: 2000
  10. COMBIVENT [Concomitant]
     Active Substance: ALBUTEROL SULFATE\IPRATROPIUM BROMIDE
     Indication: CHRONIC OBSTRUCTIVE PULMONARY DISEASE
     Dosage: TWO PUFFS AS REQUIRED
     Dates: start: 2010
  11. VANTERIL [Concomitant]
     Indication: DYSPNOEA
     Dates: start: 2000
  12. PULMICORT FLEXHALER [Suspect]
     Active Substance: BUDESONIDE
     Indication: BRONCHIAL DISORDER
     Route: 055
     Dates: start: 2000
  13. PULMICORT FLEXHALER [Suspect]
     Active Substance: BUDESONIDE
     Indication: BRONCHIAL DISORDER
     Route: 055
     Dates: start: 2000
  14. TOPROL XL [Suspect]
     Active Substance: METOPROLOL SUCCINATE
     Indication: HYPERTENSION
     Route: 048
  15. VANCERIL [Concomitant]
     Active Substance: BECLOMETHASONE DIPROPIONATE
     Dosage: 2 PUFFS TWO TIMES A DAY
  16. PROVENTIL [Concomitant]
     Active Substance: ALBUTEROL
     Indication: DYSPNOEA
     Dates: start: 1999
  17. VITAMIN D [Concomitant]
     Active Substance: CHOLECALCIFEROL

REACTIONS (10)
  - Hyperthyroidism [Recovered/Resolved]
  - Contusion [Not Recovered/Not Resolved]
  - Hypothyroidism [Recovered/Resolved]
  - Limb discomfort [Unknown]
  - Cough [Unknown]
  - Weight decreased [Unknown]
  - Epistaxis [Not Recovered/Not Resolved]
  - Atrial fibrillation [Recovered/Resolved with Sequelae]
  - Osteoporosis [Unknown]
  - Cataract [Unknown]

NARRATIVE: CASE EVENT DATE: 2010
